FAERS Safety Report 6082293-0 (Version None)
Quarter: 2009Q1

REPORT INFORMATION
  Report Type: 
  Country: None (occurrence: None)
  Receive Date: 20090218
  Receipt Date: 20090211
  Transmission Date: 20090719
  Serious: Yes (Other)
  Sender: FDA-Public Use
  Company Number: US-BAYER-200912935NA

PATIENT
  Age: 50 Year
  Sex: Female

DRUGS (9)
  1. MAGNEVIST [Suspect]
     Indication: FISTULOGRAM
  2. OMNISCAN [Suspect]
     Indication: FISTULOGRAM
  3. OPTIMARK [Suspect]
     Indication: FISTULOGRAM
  4. MULTIHANCE [Suspect]
     Indication: FISTULOGRAM
  5. PROHANCE [Suspect]
     Indication: FISTULOGRAM
  6. FENTANYL [Concomitant]
     Indication: SEDATIVE THERAPY
     Route: 042
     Dates: start: 20051220, end: 20051220
  7. FENTANYL [Concomitant]
     Route: 042
     Dates: start: 20051227, end: 20051227
  8. NITROGLYCERIN [Concomitant]
     Indication: VASOSPASM
     Route: 042
     Dates: start: 20051220, end: 20051220
  9. VERSED [Concomitant]
     Indication: SEDATIVE THERAPY
     Route: 042
     Dates: start: 20051227, end: 20051227

REACTIONS (5)
  - ANXIETY [None]
  - EMOTIONAL DISTRESS [None]
  - FIBROSIS [None]
  - NEPHROGENIC SYSTEMIC FIBROSIS [None]
  - PAIN [None]
